FAERS Safety Report 25162958 (Version 1)
Quarter: 2025Q2

REPORT INFORMATION
  Report Type: Spontaneous
  Country: CN (occurrence: CN)
  Receive Date: 20250404
  Receipt Date: 20250404
  Transmission Date: 20250716
  Serious: Yes (Hospitalization)
  Sender: ELI LILLY AND CO
  Company Number: CN-Merck Healthcare KGaA-2025015376

PATIENT
  Age: 68 Year
  Sex: Female

DRUGS (1)
  1. ERBITUX [Suspect]
     Active Substance: CETUXIMAB
     Indication: Colon cancer
     Dosage: 750 MG, 2/M
     Route: 041
     Dates: start: 20250314, end: 20250314

REACTIONS (5)
  - Confusional state [Recovering/Resolving]
  - Lip discolouration [Recovering/Resolving]
  - Peripheral coldness [Recovering/Resolving]
  - Dyspnoea [Recovering/Resolving]
  - Off label use [Unknown]

NARRATIVE: CASE EVENT DATE: 20250314
